FAERS Safety Report 21518475 (Version 1)
Quarter: 2022Q4

REPORT INFORMATION
  Report Type: Spontaneous
  Country: US (occurrence: US)
  Receive Date: 20221028
  Receipt Date: 20221028
  Transmission Date: 20230112
  Serious: Yes (Hospitalization, Other)
  Sender: FDA-Public Use
  Company Number: US-APOTEX-2022AP014756

PATIENT
  Age: 79 Year
  Sex: Male
  Weight: 85.714 kg

DRUGS (7)
  1. CYCLOBENZAPRINE [Suspect]
     Active Substance: CYCLOBENZAPRINE
     Indication: Muscle relaxant therapy
     Dosage: UNK, 10 TID
     Route: 065
  2. ACETAMINOPHEN [Concomitant]
     Active Substance: ACETAMINOPHEN
     Indication: Pain management
     Dosage: UNK
     Route: 065
     Dates: start: 2018
  3. HYDROMORPHONE [Concomitant]
     Active Substance: HYDROMORPHONE
     Indication: Pain management
     Dosage: 2 ORALLY, PER OS
     Route: 048
     Dates: start: 2018
  4. OXYCODONE [Concomitant]
     Active Substance: OXYCODONE
     Indication: Pain management
     Dosage: UNK, 10
     Route: 065
     Dates: start: 2018
  5. MEPERIDINE [Concomitant]
     Active Substance: MEPERIDINE
     Indication: Pain management
     Dosage: UNK, 25 IV
     Route: 042
     Dates: start: 2018
  6. GABAPENTIN [Concomitant]
     Active Substance: GABAPENTIN
     Indication: Pain management
     Dosage: UNK 300, TID
     Route: 065
     Dates: start: 2018
  7. BACLOFEN [Concomitant]
     Active Substance: BACLOFEN
     Indication: Muscle relaxant therapy
     Dosage: UNK 10, TID
     Route: 065
     Dates: start: 2018

REACTIONS (1)
  - Delirium [Recovered/Resolved]

NARRATIVE: CASE EVENT DATE: 20180101
